FAERS Safety Report 26052944 (Version 1)
Quarter: 2025Q4

REPORT INFORMATION
  Report Type: Spontaneous
  Country: US (occurrence: US)
  Receive Date: 20251117
  Receipt Date: 20251117
  Transmission Date: 20260118
  Serious: No
  Sender: MAYNE
  Company Number: US-MAYNE PHARMA-2025MYN000399

PATIENT
  Age: 40 Year
  Sex: Female

DRUGS (1)
  1. BIJUVA [Suspect]
     Active Substance: ESTRADIOL\PROGESTERONE
     Indication: Product used for unknown indication
     Dosage: 1/100 MG
     Route: 065
     Dates: start: 202412

REACTIONS (4)
  - Migraine [Not Recovered/Not Resolved]
  - Crying [Unknown]
  - Product storage error [Unknown]
  - Drug ineffective [Unknown]
